FAERS Safety Report 4727912-3 (Version None)
Quarter: 2005Q3

REPORT INFORMATION
  Report Type: 
  Country: None (occurrence: None)
  Receive Date: 20050728
  Receipt Date: 20050412
  Transmission Date: 20060218
  Serious: Yes (Other)
  Sender: FDA-Public Use
  Company Number: US-MERCK-0504USA02080

PATIENT
  Age: 67 Year
  Sex: Female
  Weight: 72 kg

DRUGS (7)
  1. VIOXX [Suspect]
     Indication: ARTHRITIS
     Route: 048
     Dates: start: 20010101, end: 20040101
  2. GLUCOPHAGE [Concomitant]
     Indication: DIABETES MELLITUS
     Route: 065
  3. ENALAPRIL MALEATE [Concomitant]
     Indication: HYPERTENSION
     Route: 065
  4. GLUCOTROL [Concomitant]
     Indication: DIABETES MELLITUS
     Route: 065
  5. ASPIRIN [Concomitant]
     Route: 065
  6. TYLENOL [Concomitant]
     Indication: ARTHRITIS
     Route: 065
  7. ZOCOR [Concomitant]
     Indication: BLOOD CHOLESTEROL INCREASED
     Route: 048

REACTIONS (7)
  - ABDOMINAL PAIN UPPER [None]
  - CEREBROVASCULAR ACCIDENT [None]
  - DYSPEPSIA [None]
  - EYE DISORDER [None]
  - GASTROINTESTINAL DISORDER [None]
  - RHEUMATOID ARTHRITIS [None]
  - VISUAL ACUITY REDUCED [None]
